FAERS Safety Report 15366237 (Version 1)
Quarter: 2018Q3

REPORT INFORMATION
  Report Type: Spontaneous
  Country: US (occurrence: US)
  Receive Date: 20180831
  Receipt Date: 20180831
  Transmission Date: 20181010
  Serious: Yes (Hospitalization, Other)
  Sender: FDA-Public Use
  Company Number: None

PATIENT
  Age: 56 Year
  Sex: Male

DRUGS (1)
  1. CVS HEALTH SINUS RELIEF [Suspect]
     Active Substance: OXYMETAZOLINE HYDROCHLORIDE
     Indication: NASAL DRYNESS
     Route: 055
     Dates: start: 20180301, end: 20180401

REACTIONS (3)
  - Lower respiratory tract infection [None]
  - Pseudomonas test positive [None]
  - Pneumonia [None]

NARRATIVE: CASE EVENT DATE: 20180410
